FAERS Safety Report 22617123 (Version 5)
Quarter: 2023Q4

REPORT INFORMATION
  Report Type: Spontaneous
  Country: US (occurrence: US)
  Receive Date: 20230620
  Receipt Date: 20231120
  Transmission Date: 20240110
  Serious: No
  Sender: FDA-Public Use
  Company Number: US-JNJFOC-20230638550

PATIENT
  Age: 20 Year
  Sex: Female
  Weight: 40.9 kg

DRUGS (20)
  1. TYLENOL [Suspect]
     Active Substance: ACETAMINOPHEN
     Indication: Headache
     Route: 065
  2. TYLENOL [Suspect]
     Active Substance: ACETAMINOPHEN
     Indication: Myalgia
  3. UPTRAVI [Concomitant]
     Active Substance: SELEXIPAG
     Indication: Pulmonary hypertension
     Dosage: UPTRAVI 200MCG ORALLY 2 TIMES DAILY
     Route: 048
  4. UPTRAVI [Concomitant]
     Active Substance: SELEXIPAG
     Route: 065
  5. UPTRAVI [Concomitant]
     Active Substance: SELEXIPAG
     Dosage: 200 UG AM + 400 UG PM
     Route: 065
  6. UPTRAVI [Concomitant]
     Active Substance: SELEXIPAG
     Dosage: ONE TABLET IN MORNING AND TWO AT NIGHT
     Route: 065
  7. TYVASO [Concomitant]
     Active Substance: TREPROSTINIL
     Indication: Pulmonary arterial hypertension
     Route: 055
  8. TYVASO [Concomitant]
     Active Substance: TREPROSTINIL
     Route: 055
  9. TYVASO [Concomitant]
     Active Substance: TREPROSTINIL
     Route: 055
  10. TYVASO [Concomitant]
     Active Substance: TREPROSTINIL
     Route: 055
  11. TYVASO [Concomitant]
     Active Substance: TREPROSTINIL
     Route: 055
  12. TYVASO [Concomitant]
     Active Substance: TREPROSTINIL
     Route: 055
     Dates: start: 20190627
  13. TYVASO [Concomitant]
     Active Substance: TREPROSTINIL
     Route: 055
  14. SILDENAFIL CITRATE [Concomitant]
     Active Substance: SILDENAFIL CITRATE
     Indication: Product used for unknown indication
     Route: 065
  15. AMBRISENTAN [Concomitant]
     Active Substance: AMBRISENTAN
     Indication: Product used for unknown indication
     Route: 065
  16. ATENOLOL [Concomitant]
     Active Substance: ATENOLOL
     Indication: Product used for unknown indication
     Route: 065
  17. VITAMINS [Concomitant]
     Active Substance: VITAMINS
     Indication: Product used for unknown indication
     Route: 065
  18. AMOXICILLIN TRIHYDRATE [Concomitant]
     Active Substance: AMOXICILLIN
     Indication: Product used for unknown indication
     Route: 065
  19. ASPIRIN [Concomitant]
     Active Substance: ASPIRIN
     Indication: Product used for unknown indication
     Route: 065
  20. ACETAMINOPHEN [Concomitant]
     Active Substance: ACETAMINOPHEN
     Indication: Product used for unknown indication
     Route: 065

REACTIONS (1)
  - Drug ineffective [Unknown]
